FAERS Safety Report 7472108-8 (Version None)
Quarter: 2011Q2

REPORT INFORMATION
  Report Type: 
  Country: None (occurrence: None)
  Receive Date: 20110511
  Receipt Date: 20101227
  Transmission Date: 20111010
  Serious: No
  Sender: FDA-Public Use
  Company Number: A0902277A

PATIENT
  Age: 69 Year
  Sex: Female
  Weight: 70.9 kg

DRUGS (3)
  1. TYKERB [Suspect]
     Dosage: 1000MG PER DAY
     Route: 065
     Dates: start: 20101220
  2. HERCEPTIN [Concomitant]
  3. POTASSIUM SUPPLEMENTS [Concomitant]

REACTIONS (1)
  - DIARRHOEA [None]
